FAERS Safety Report 9926185 (Version 1)
Quarter: 2014Q1

REPORT INFORMATION
  Report Type: Spontaneous
  Country: GR (occurrence: GR)
  Receive Date: 20140226
  Receipt Date: 20140226
  Transmission Date: 20141002
  Serious: Yes (Other)
  Sender: FDA-Public Use
  Company Number: GR-PFIZER INC-2014051574

PATIENT
  Age: 70 Year
  Sex: Male

DRUGS (8)
  1. VIAGRA [Suspect]
     Dosage: UNK
  2. XANAX [Concomitant]
     Dosage: UNK
  3. ANGORON [Concomitant]
     Dosage: UNK
  4. RYTHMONORM [Concomitant]
     Dosage: UNK
  5. APROVEL [Concomitant]
     Dosage: UNK
  6. SINTROM [Concomitant]
     Dosage: UNK
  7. LEXOTANIL [Concomitant]
     Dosage: UNK
  8. MODURETIC [Concomitant]
     Dosage: UNK

REACTIONS (2)
  - Arrhythmia [Unknown]
  - Atrial fibrillation [Unknown]
